FAERS Safety Report 7546357 (Version 3)
Quarter: 2013Q3

REPORT INFORMATION
  Report Type: Spontaneous
  Country: CA (occurrence: CA)
  Receive Date: 20100819
  Receipt Date: 20130702
  Transmission Date: 20140515
  Serious: Yes (Other)
  Sender: FDA-Public Use
  Company Number: CA-ELI_LILLY_AND_COMPANY-CA200811000601

PATIENT
  Age: 76 Year
  Sex: Male

DRUGS (2)
  1. HUMALOG 25% LISPRO, 75% NPL [Suspect]
     Dosage: UNK
     Dates: start: 2008
  2. HUMALOG 25% LISPRO, 75% NPL [Suspect]

REACTIONS (6)
  - Blindness [Unknown]
  - Glaucoma [Not Recovered/Not Resolved]
  - Retinal tear [Unknown]
  - Visual impairment [Unknown]
  - Diabetic eye disease [Not Recovered/Not Resolved]
  - Cataract [Unknown]
